FAERS Safety Report 25508846 (Version 1)
Quarter: 2025Q3

REPORT INFORMATION
  Report Type: Spontaneous
  Country: US (occurrence: US)
  Receive Date: 20250703
  Receipt Date: 20250703
  Transmission Date: 20251020
  Serious: No
  Sender: Kenvue
  Company Number: US-KENVUE-20250600985

PATIENT
  Sex: Male

DRUGS (25)
  1. IMODIUM [Suspect]
     Active Substance: LOPERAMIDE HYDROCHLORIDE
     Indication: Diarrhoea
     Route: 065
  2. TREPROSTINIL [Concomitant]
     Active Substance: TREPROSTINIL
     Indication: Pulmonary arterial hypertension
     Dosage: 64 MILLIGRAM, FOUR TIME A DAY
  3. TREPROSTINIL [Concomitant]
     Active Substance: TREPROSTINIL
     Dates: start: 202301, end: 2024
  4. TYVASO DPI [Concomitant]
     Active Substance: TREPROSTINIL
     Indication: Pulmonary arterial hypertension
     Dosage: UNK UNK, TWICE A DAY
     Dates: start: 202301
  5. TYVASO DPI [Concomitant]
     Active Substance: TREPROSTINIL
  6. ORENITRAM [Concomitant]
     Active Substance: TREPROSTINIL
     Indication: Pulmonary arterial hypertension
     Dosage: 0.25 MILLIGRAM, THRICE A DAY
     Route: 048
     Dates: start: 202408, end: 2024
  7. ORENITRAM [Concomitant]
     Active Substance: TREPROSTINIL
     Route: 048
  8. ORENITRAM [Concomitant]
     Active Substance: TREPROSTINIL
     Route: 048
     Dates: start: 202408, end: 2024
  9. ORENITRAM [Concomitant]
     Active Substance: TREPROSTINIL
     Dosage: 0.375 MILLIGRAM (0.25 MG +0.125MG) THRICE A DAY
     Route: 048
     Dates: start: 2024, end: 2024
  10. ORENITRAM [Concomitant]
     Active Substance: TREPROSTINIL
     Dosage: 0.5 MILLIGRAM, THRICE A DAY
     Route: 048
     Dates: start: 2024, end: 202411
  11. ORENITRAM [Concomitant]
     Active Substance: TREPROSTINIL
     Dosage: 0.75 MG [3 TABLETS OF 0.25 MG] THRICE A DAY
     Route: 048
     Dates: start: 202411, end: 2024
  12. ORENITRAM [Concomitant]
     Active Substance: TREPROSTINIL
     Dosage: 1 MILLIGRAM, THRICE A DAY
     Route: 048
     Dates: start: 2024
  13. ORENITRAM [Concomitant]
     Active Substance: TREPROSTINIL
     Dosage: 1.25 MG, (1 MG +.25 MG) THRICE A DAY
     Route: 048
  14. ORENITRAM [Concomitant]
     Active Substance: TREPROSTINIL
     Dosage: 1.125 MG, [1 TABLET OF 1 MG + 1 TABLET OF 0.125 MG]  THRICE A DAY
     Route: 048
  15. ORENITRAM [Concomitant]
     Active Substance: TREPROSTINIL
     Dosage: 1.25 MG, [1 TABLET OF 1 MG + 2 TABLETS OF 0.125 MG],G]  THRICE A DAY
     Route: 048
  16. ORENITRAM [Concomitant]
     Active Substance: TREPROSTINIL
     Dosage: 1.375 MILLIGRAM, THRICE A DAY
     Route: 048
  17. ORENITRAM [Concomitant]
     Active Substance: TREPROSTINIL
     Dosage: 1.5 MG [1 TABLET OF 1 MG + 2 TABLETS OF 0.25 MG] THRICE A DAY
     Route: 048
  18. ORENITRAM [Concomitant]
     Active Substance: TREPROSTINIL
     Dosage: 1.625 MG [1 TABLET OF 1 MG + 2 TABLETS OF 0.25 MG + 1 TABLET OF 0.125 MG] THRICE A DAY
     Route: 048
  19. ORENITRAM [Concomitant]
     Active Substance: TREPROSTINIL
     Dosage: 1.75 MG [1 TABLET OF 1 MG + 3 ONGOING TABLETS OF 0.25 [0.75] MG] THRICE A DAY
     Route: 048
  20. ORENITRAM [Concomitant]
     Active Substance: TREPROSTINIL
     Route: 048
     Dates: start: 202408
  21. SILDENAFIL CITRATE [Concomitant]
     Active Substance: SILDENAFIL CITRATE
     Indication: Product used for unknown indication
     Route: 065
  22. OPSUMIT [Concomitant]
     Active Substance: MACITENTAN
     Indication: Product used for unknown indication
     Route: 065
  23. WINREVAIR [Concomitant]
     Active Substance: SOTATERCEPT-CSRK
     Indication: Product used for unknown indication
     Route: 065
  24. PEPTO-BISMOL [Concomitant]
     Active Substance: BISMUTH SUBSALICYLATE
     Indication: Diarrhoea
     Route: 065
  25. SOTATERCEPT [Concomitant]
     Active Substance: SOTATERCEPT
     Indication: Product used for unknown indication

REACTIONS (2)
  - Constipation [Unknown]
  - Diarrhoea [Unknown]
